FAERS Safety Report 7271052-9 (Version None)
Quarter: 2011Q1

REPORT INFORMATION
  Report Type: 
  Country: None (occurrence: None)
  Receive Date: 20110202
  Receipt Date: 20110127
  Transmission Date: 20110831
  Serious: Yes (Hospitalization, Other)
  Sender: FDA-Public Use
  Company Number: US-PFIZER INC-2011020845

PATIENT
  Sex: Male

DRUGS (1)
  1. CHANTIX [Suspect]
     Dosage: UNK
     Dates: start: 20070809

REACTIONS (18)
  - BIPOLAR DISORDER [None]
  - PSYCHOTIC BEHAVIOUR [None]
  - SUICIDAL BEHAVIOUR [None]
  - AGGRESSION [None]
  - DISTURBANCE IN ATTENTION [None]
  - DEPRESSION [None]
  - INSOMNIA [None]
  - ACUTE PSYCHOSIS [None]
  - ANXIETY [None]
  - HALLUCINATION [None]
  - ASTHENIA [None]
  - DYSPHORIA [None]
  - MENTAL DISORDER [None]
  - ADJUSTMENT DISORDER WITH MIXED DISTURBANCE OF EMOTION AND CONDUCT [None]
  - MEMORY IMPAIRMENT [None]
  - DELUSION [None]
  - AFFECTIVE DISORDER [None]
  - ANHEDONIA [None]
